FAERS Safety Report 8968437 (Version 1)
Quarter: 2012Q4

REPORT INFORMATION
  Report Type: 
  Country: US (occurrence: US)
  Receive Date: 20121218
  Receipt Date: 20121218
  Transmission Date: 20130627
  Serious: No
  Sender: FDA-Public Use
  Company Number: US-BRISTOL-MYERS SQUIBB COMPANY-16376378

PATIENT
  Age: 55 Year
  Sex: Male
  Weight: 91 kg

DRUGS (2)
  1. ABILIFY TABS 2 MG [Suspect]
     Indication: DEPRESSION
     Dosage: Inter on 28Jan12 and restarted on 29Jan12
     Dates: start: 20120127
  2. CITALOPRAM [Suspect]
     Indication: DEPRESSION
     Dates: start: 20120127

REACTIONS (6)
  - Vomiting [Unknown]
  - Influenza like illness [Unknown]
  - Asthma [Unknown]
  - Faeces discoloured [Unknown]
  - Diarrhoea [Unknown]
  - Wrong technique in drug usage process [Unknown]
